FAERS Safety Report 11127536 (Version 1)
Quarter: 2015Q2

REPORT INFORMATION
  Report Type: Spontaneous
  Country: BD (occurrence: None)
  Receive Date: 20150519
  Receipt Date: 20150519
  Transmission Date: 20150821
  Serious: Yes (Death, Hospitalization)
  Sender: FDA-Public Use
  Company Number: IPC201505-000291

PATIENT
  Age: 28 Year
  Sex: Female

DRUGS (1)
  1. CHLOROQUINE PHOSPHATE (CHLOROQUINE PHOSPHATE) (CHLOROQUINE PHOSPHATE) [Suspect]
     Active Substance: CHLOROQUINE PHOSPHATE

REACTIONS (9)
  - Sepsis [None]
  - Dehydration [None]
  - Body temperature increased [None]
  - Alopecia [None]
  - Blood albumin decreased [None]
  - Electrolyte imbalance [None]
  - Tachycardia [None]
  - Toxic epidermal necrolysis [None]
  - Cough [None]
